FAERS Safety Report 13567618 (Version 1)
Quarter: 2017Q2

REPORT INFORMATION
  Report Type: Spontaneous
  Country: US (occurrence: US)
  Receive Date: 20170522
  Receipt Date: 20170522
  Transmission Date: 20170830
  Serious: No
  Sender: FDA-Public Use
  Company Number: US-TEVA-731205ACC

PATIENT
  Age: 5 Decade
  Sex: Female

DRUGS (1)
  1. MIMVEY [Suspect]
     Active Substance: ESTRADIOL\NORETHINDRONE ACETATE
     Indication: BLOOD OESTROGEN DECREASED
     Route: 065

REACTIONS (2)
  - Product use in unapproved indication [Unknown]
  - Oligomenorrhoea [Unknown]
